FAERS Safety Report 13348524 (Version 1)
Quarter: 2017Q1

REPORT INFORMATION
  Report Type: Report from Study
  Country: JP (occurrence: JP)
  Receive Date: 20170320
  Receipt Date: 20170320
  Transmission Date: 20170428
  Serious: Yes (Other)
  Sender: FDA-Public Use
  Company Number: JP-CELGENEUS-087-21880-10122453

PATIENT
  Age: 58 Year
  Sex: Female

DRUGS (16)
  1. REVLIMID [Suspect]
     Active Substance: LENALIDOMIDE
     Dosage: 25 MILLIGRAM
     Route: 048
     Dates: start: 20101001, end: 20101021
  2. REVLIMID [Suspect]
     Active Substance: LENALIDOMIDE
     Route: 048
  3. BAYASPIRIN [Concomitant]
     Active Substance: ASPIRIN
     Indication: PROPHYLAXIS
     Dosage: 100 MILLIGRAM
     Route: 048
     Dates: start: 20100826
  4. REVLIMID [Suspect]
     Active Substance: LENALIDOMIDE
     Dosage: 25 MILLIGRAM
     Route: 048
     Dates: start: 20101029, end: 20101118
  5. DECADRON [Concomitant]
     Active Substance: DEXAMETHASONE
     Dosage: 20 MILLIGRAM
     Route: 048
     Dates: start: 20101001, end: 20101020
  6. MAGNESIUM OXIDE. [Concomitant]
     Active Substance: MAGNESIUM OXIDE
     Indication: ILL-DEFINED DISORDER
     Dosage: 2.01 GRAM
     Route: 048
     Dates: start: 20100826, end: 20100920
  7. MAGNESIUM OXIDE. [Concomitant]
     Active Substance: MAGNESIUM OXIDE
     Dosage: 2.01 GRAM
     Route: 048
     Dates: start: 20101028, end: 20101106
  8. POSTERISAN [Concomitant]
     Active Substance: LIDOCAINE
     Indication: ILL-DEFINED DISORDER
     Dosage: 6 GRAM
     Route: 065
     Dates: start: 20100826
  9. PURSENNID [Concomitant]
     Active Substance: SENNOSIDES A AND B
     Dosage: 24 MILLIGRAM
     Route: 048
     Dates: start: 20101111
  10. DECADRON [Concomitant]
     Active Substance: DEXAMETHASONE
     Indication: PLASMA CELL MYELOMA
     Dosage: 20 MILLIGRAM
     Route: 048
     Dates: start: 20100826, end: 20100914
  11. METHYCOBAL [Concomitant]
     Active Substance: METHYLCOBALAMIN
     Indication: NEUROPATHY PERIPHERAL
     Dosage: 1500 UG
     Route: 048
     Dates: start: 20100826
  12. REVLIMID [Suspect]
     Active Substance: LENALIDOMIDE
     Indication: PLASMA CELL MYELOMA
     Dosage: 25 MILLIGRAM
     Route: 048
     Dates: start: 20100826, end: 20100915
  13. MAGNESIUM OXIDE. [Concomitant]
     Active Substance: MAGNESIUM OXIDE
     Dosage: 2.01 GRAM
     Route: 048
     Dates: start: 201011
  14. GASMOTIN [Concomitant]
     Active Substance: MOSAPRIDE CITRATE
     Indication: PROPHYLAXIS
     Dosage: 15 MILLIGRAM
     Route: 048
     Dates: start: 20100826, end: 20100920
  15. PURSENNID [Concomitant]
     Active Substance: SENNOSIDES A AND B
     Indication: ILL-DEFINED DISORDER
     Dosage: 24 MILLIGRAM
     Route: 048
     Dates: start: 20101014, end: 20101023
  16. GASTER [Concomitant]
     Active Substance: FAMOTIDINE
     Indication: PROPHYLAXIS
     Dosage: 20 MILLIGRAM
     Route: 048
     Dates: start: 20100826

REACTIONS (10)
  - Glycosuria [Recovered/Resolved]
  - Malaise [Recovered/Resolved]
  - Platelet count decreased [Recovered/Resolved]
  - Bacterial colitis [Recovered/Resolved]
  - Gingivitis [Recovered/Resolved]
  - Malaise [Recovered/Resolved]
  - Neuropathy peripheral [Not Recovered/Not Resolved]
  - C-reactive protein increased [Recovered/Resolved]
  - Haematuria [Not Recovered/Not Resolved]
  - Liver disorder [Recovered/Resolved]

NARRATIVE: CASE EVENT DATE: 20100918
